FAERS Safety Report 25299582 (Version 2)
Quarter: 2025Q2

REPORT INFORMATION
  Report Type: Spontaneous
  Country: RO (occurrence: RO)
  Receive Date: 20250512
  Receipt Date: 20250527
  Transmission Date: 20250717
  Serious: Yes (Other)
  Sender: ABBVIE
  Company Number: RO-ABBVIE-6272393

PATIENT
  Age: 40 Year
  Sex: Female
  Weight: 78 kg

DRUGS (3)
  1. RINVOQ [Suspect]
     Active Substance: UPADACITINIB
     Indication: Colitis ulcerative
     Route: 048
     Dates: start: 20240324
  2. RINVOQ [Suspect]
     Active Substance: UPADACITINIB
     Indication: Colitis ulcerative
     Route: 048
     Dates: start: 20250325
  3. Daltex [Concomitant]
     Indication: Diabetes mellitus

REACTIONS (3)
  - Pancreatitis [Recovering/Resolving]
  - C-reactive protein increased [Unknown]
  - Faecal calprotectin increased [Unknown]

NARRATIVE: CASE EVENT DATE: 20250501
